FAERS Safety Report 5133902-1 (Version None)
Quarter: 2006Q4

REPORT INFORMATION
  Report Type: 
  Country: None (occurrence: None)
  Receive Date: 20061019
  Receipt Date: 20061016
  Transmission Date: 20070319
  Serious: Yes (Hospitalization)
  Sender: FDA-Public Use
  Company Number: GXKR2006DE06480

PATIENT
  Age: 80 Year
  Sex: Male
  Weight: 85 kg

DRUGS (2)
  1. DOXYCYCLINE [Suspect]
     Indication: RESPIRATORY TRACT INFECTION
     Dosage: 100 MG, BID, ORAL
     Route: 048
     Dates: start: 20061010, end: 20061014
  2. TUSSORETARD (CODEINE PHOSPHATE, DIPHENHYDRAMINE HYDROCHLORIDE, METHYLE [Concomitant]

REACTIONS (2)
  - GENITAL RASH [None]
  - SOMNOLENCE [None]
